FAERS Safety Report 18698465 (Version 1)
Quarter: 2021Q1

REPORT INFORMATION
  Report Type: Other
  Country: US (occurrence: US)
  Receive Date: 20210104
  Receipt Date: 20210104
  Transmission Date: 20210419
  Serious: Yes (Hospitalization)
  Sender: FDA-Public Use
  Company Number: US-NOVA LABORATORIES LIMITED-2103898

PATIENT
  Age: 53 Year
  Sex: Male

DRUGS (4)
  1. ADALIMUMAB [Suspect]
     Active Substance: ADALIMUMAB
  2. PREDNISONE. [Suspect]
     Active Substance: PREDNISONE
  3. USTEKINUMAB [Suspect]
     Active Substance: USTEKINUMAB
  4. PURIXAN [Suspect]
     Active Substance: MERCAPTOPURINE
     Indication: INTESTINAL ULCER

REACTIONS (3)
  - Intestinal ulcer [Recovering/Resolving]
  - Liver abscess [Recovering/Resolving]
  - Off label use [None]
